FAERS Safety Report 4486146-0 (Version None)
Quarter: 2004Q4

REPORT INFORMATION
  Report Type: 
  Country: None (occurrence: None)
  Receive Date: 20041026
  Receipt Date: 20041021
  Transmission Date: 20050328
  Serious: Yes (Hospitalization, Disabling)
  Sender: FDA-Public Use
  Company Number: GB-MERCK-0410GBR00254

PATIENT
  Sex: Female

DRUGS (3)
  1. VIOXX [Suspect]
     Indication: LOCALISED OSTEOARTHRITIS
     Route: 048
     Dates: start: 20040909, end: 20041005
  2. ACETAMINOPHEN AND DIHYDROCODEINE BITARTRATE [Concomitant]
     Indication: LOCALISED OSTEOARTHRITIS
     Route: 048
     Dates: start: 19950101
  3. ISOSORBIDE MONONITRATE [Concomitant]
     Route: 048
     Dates: start: 20030923

REACTIONS (1)
  - CEREBROVASCULAR ACCIDENT [None]
